FAERS Safety Report 4726733-5 (Version None)
Quarter: 2005Q3

REPORT INFORMATION
  Report Type: 
  Country: None (occurrence: None)
  Receive Date: 20050725
  Receipt Date: 20050418
  Transmission Date: 20060218
  Serious: No
  Sender: FDA-Public Use
  Company Number: USA050495930

PATIENT
  Age: 7 Year
  Sex: Male
  Weight: 24 kg

DRUGS (2)
  1. STRATTERA [Suspect]
     Indication: SPEECH DISORDER
     Dosage: 40 MG DAY
     Dates: start: 20050413
  2. BUSPAR [Concomitant]

REACTIONS (2)
  - CONSTIPATION [None]
  - PRESCRIBED OVERDOSE [None]
